FAERS Safety Report 21260576 (Version 1)
Quarter: 2022Q3

REPORT INFORMATION
  Report Type: Spontaneous
  Country: AT (occurrence: AT)
  Receive Date: 20220826
  Receipt Date: 20220826
  Transmission Date: 20221026
  Serious: Yes (Hospitalization)
  Sender: FDA-Public Use
  Company Number: None

PATIENT
  Age: 59 Year
  Sex: Female

DRUGS (15)
  1. CIPROFLOXACIN [Suspect]
     Active Substance: CIPROFLOXACIN
     Indication: Urinary tract infection
     Dosage: UNIT DOSE : 1 DOSAGE FORM, FREQUENCY TIME : 1 DAY, STRENGTH  : 500MG, DURATION :  4 DAYS
     Route: 065
     Dates: start: 20220713, end: 20220717
  2. ROXADUSTAT [Suspect]
     Active Substance: ROXADUSTAT
     Indication: Product used for unknown indication
     Dosage: 1 DOSAGE FORMS DAILY; 1-0-0 TUES, THURS, SAT , STRENGTH  :50 MG, DURATION :  37 DAYS, UNIT DOSE : 1
     Route: 065
     Dates: start: 20220621, end: 20220728
  3. PREDNISOLONE [Concomitant]
     Active Substance: PREDNISOLONE
     Indication: Product used for unknown indication
     Dosage: STRENGTH  : 5 MG, DURATION :  37 DAYS
     Dates: start: 20220621, end: 20220728
  4. CARVEDILOL [Concomitant]
     Active Substance: CARVEDILOL
     Indication: Product used for unknown indication
     Dosage: STRENGTH  : 25MG , DURATION : 37 DAYS
     Dates: start: 20220621, end: 20220728
  5. FOLIC ACID [Concomitant]
     Active Substance: FOLIC ACID
     Indication: Product used for unknown indication
     Dosage: STRENGTH  : 5 MG, DURATION : 37 DAYS
     Dates: start: 20220621, end: 20220728
  6. VALSARTAN [Concomitant]
     Active Substance: VALSARTAN
     Indication: Product used for unknown indication
     Dosage: STRENGTH  :160MG , DURATION : 37 DAYS
     Dates: start: 20220621, end: 20220728
  7. PANTOPRAZOLE SODIUM [Concomitant]
     Active Substance: PANTOPRAZOLE SODIUM
     Indication: Product used for unknown indication
     Dosage: STRENGTH  :40MG , DURATION : 37 DAYS
     Dates: start: 20220621, end: 20220728
  8. LASIX [Concomitant]
     Active Substance: FUROSEMIDE
     Indication: Product used for unknown indication
     Dosage: STRENGTH  :160MG , DURATION : 37 DAYS
     Dates: start: 20220621, end: 20220728
  9. SODIUM BICARBONATE [Concomitant]
     Active Substance: SODIUM BICARBONATE
     Indication: Product used for unknown indication
     Dosage: STRENGTH  : 500MG, DURATION : 37 DAYS
     Dates: start: 20220621, end: 20220728
  10. MOXONIDINE [Concomitant]
     Active Substance: MOXONIDINE
     Indication: Product used for unknown indication
     Dosage: STRENGTH  :  0,2MG, DURATION : 37 DAYS
     Dates: start: 20220621, end: 20220728
  11. LANTUS [Concomitant]
     Active Substance: INSULIN GLARGINE
     Indication: Product used for unknown indication
     Dosage: STRENGTH  :  100E/ML, DURATION : 37 DAYS
     Dates: start: 20220621, end: 20220728
  12. TACROLIMUS [Concomitant]
     Active Substance: TACROLIMUS
     Indication: Product used for unknown indication
     Dosage: STRENGTH  :  2,5MG , DURATION : 37 DAYS
     Dates: start: 20220621, end: 20220728
  13. MYFENAX [Concomitant]
     Active Substance: MYCOPHENOLATE MOFETIL
     Indication: Product used for unknown indication
     Dosage: STRENGTH  :  500MG , DURATION : 37 DAYS
     Dates: start: 20220621, end: 20220728
  14. Nepresol [Concomitant]
     Indication: Product used for unknown indication
     Dosage: STRENGTH  :   25MG, DURATION : 37 DAYS
     Dates: start: 20220621, end: 20220728
  15. LINAGLIPTIN [Concomitant]
     Active Substance: LINAGLIPTIN
     Indication: Product used for unknown indication
     Dosage: STRENGTH  :  5MG, DURATION : 37 DAYS
     Dates: start: 20220621, end: 20220728

REACTIONS (2)
  - Generalised tonic-clonic seizure [Recovered/Resolved]
  - Generalised tonic-clonic seizure [Recovered/Resolved]

NARRATIVE: CASE EVENT DATE: 20220717
